FAERS Safety Report 6194986-5 (Version None)
Quarter: 2009Q2

REPORT INFORMATION
  Report Type: 
  Country: None (occurrence: None)
  Receive Date: 20090519
  Receipt Date: 20090508
  Transmission Date: 20091009
  Serious: Yes (Hospitalization)
  Sender: FDA-Public Use
  Company Number: A0772566A

PATIENT
  Age: 54 Year
  Sex: Female
  Weight: 89.1 kg

DRUGS (4)
  1. AVANDIA [Suspect]
     Indication: DRUG USE FOR UNKNOWN INDICATION
     Dosage: 4MG PER DAY
     Route: 048
     Dates: start: 20020101, end: 20040817
  2. METFORMIN HCL [Concomitant]
  3. GLUCOTROL [Concomitant]
  4. LISINOPRIL [Concomitant]

REACTIONS (1)
  - MYOCARDIAL INFARCTION [None]
